FAERS Safety Report 23977879 (Version 1)
Quarter: 2024Q2

REPORT INFORMATION
  Report Type: Report from Study
  Country: BR (occurrence: BR)
  Receive Date: 20240614
  Receipt Date: 20240614
  Transmission Date: 20240716
  Serious: Yes (Other)
  Sender: FDA-Public Use
  Company Number: BR-ABBVIE-5797585

PATIENT
  Sex: Male
  Weight: 80 kg

DRUGS (2)
  1. RINVOQ [Suspect]
     Active Substance: UPADACITINIB
     Indication: Rheumatoid arthritis
     Dosage: 1 TABLET?FORM STRENGTH: 15 MILLIGRAM
     Route: 048
     Dates: start: 20210327
  2. ADALIMUMAB [Suspect]
     Active Substance: ADALIMUMAB\ISOPROPYL ALCOHOL
     Indication: Product used for unknown indication
     Route: 058

REACTIONS (16)
  - Pulmonary tuberculosis [Unknown]
  - Dermatitis allergic [Unknown]
  - Immunodeficiency [Unknown]
  - Erythema [Unknown]
  - Nephrolithiasis [Unknown]
  - Headache [Unknown]
  - Skin irritation [Unknown]
  - Neck pain [Unknown]
  - Eye pain [Unknown]
  - Memory impairment [Unknown]
  - Skin necrosis [Unknown]
  - Skin texture abnormal [Unknown]
  - Renal pain [Not Recovered/Not Resolved]
  - Procedural pain [Unknown]
  - Blood pressure increased [Unknown]
  - Blood pressure abnormal [Unknown]

NARRATIVE: CASE EVENT DATE: 20240101
